FAERS Safety Report 5584981-9 (Version None)
Quarter: 2007Q4

REPORT INFORMATION
  Report Type: 
  Country: None (occurrence: None)
  Receive Date: 20071130
  Receipt Date: 20070517
  Transmission Date: 20080405
  Serious: Yes (Hospitalization)
  Sender: FDA-Public Use
  Company Number: WAES 0705USA03182

PATIENT
  Age: 77 Year
  Sex: Female
  Weight: 55.7924 kg

DRUGS (9)
  1. FOSAMAX [Suspect]
     Indication: OSTEOPOROSIS
     Dosage: WKY/PO ; WKY/PO
     Route: 048
     Dates: start: 20070101, end: 20070101
  2. FOSAMAX [Suspect]
     Indication: OSTEOPOROSIS
     Dosage: WKY/PO ; WKY/PO
     Route: 048
     Dates: start: 20070203, end: 20070224
  3. BENADRYL [Concomitant]
  4. COUMADIN [Concomitant]
  5. COZAAR [Concomitant]
  6. FOLIC ACID [Concomitant]
  7. FUROSEMIDE [Concomitant]
  8. METHOTREXATE [Concomitant]
  9. PREDNISONE TAB [Concomitant]

REACTIONS (8)
  - ABDOMINAL PAIN [None]
  - ADVERSE DRUG REACTION [None]
  - DIARRHOEA [None]
  - DYSPEPSIA [None]
  - GASTROOESOPHAGEAL REFLUX DISEASE [None]
  - HELICOBACTER INFECTION [None]
  - REGURGITATION [None]
  - WEIGHT DECREASED [None]
